FAERS Safety Report 9997193 (Version 1)
Quarter: 2014Q1

REPORT INFORMATION
  Report Type: Spontaneous
  Country: US (occurrence: None)
  Receive Date: 20140218
  Receipt Date: 20140218
  Transmission Date: 20141002
  Serious: Yes (Other)
  Sender: FDA-Public Use
  Company Number: 1000052243

PATIENT
  Sex: Female

DRUGS (2)
  1. VIIBRYD [Suspect]
     Indication: ANXIETY
     Dosage: 5 MG (5 MG , 1 IN 1 D) TABLETS
  2. VIIBRYD [Suspect]
     Indication: ANXIETY
     Dosage: 20 MG (20 MG, 1 IN 1 D) - STOPPED  THERAPY DATES

REACTIONS (3)
  - Anxiety [None]
  - Agitation [None]
  - Off label use [None]
